FAERS Safety Report 7352028-X (Version None)
Quarter: 2011Q1

REPORT INFORMATION
  Report Type: 
  Country: None (occurrence: None)
  Receive Date: 20110309
  Receipt Date: 20110309
  Transmission Date: 20110831
  Serious: Yes (Hospitalization)
  Sender: FDA-Public Use
  Company Number: None

PATIENT
  Sex: Male
  Weight: 58 kg

DRUGS (1)
  1. REVLIMID [Suspect]
     Indication: ACUTE LYMPHOCYTIC LEUKAEMIA
     Dosage: REVLEMID 50 MG QD PO
     Route: 048

REACTIONS (6)
  - NEUTROPHIL COUNT DECREASED [None]
  - COUGH [None]
  - RHINORRHOEA [None]
  - PYREXIA [None]
  - SPUTUM DISCOLOURED [None]
  - FATIGUE [None]
